FAERS Safety Report 8791865 (Version 1)
Quarter: 2012Q4

REPORT INFORMATION
  Report Type: 
  Country: JP (occurrence: JP)
  Receive Date: 20120918
  Receipt Date: 20120918
  Transmission Date: 20130627
  Serious: Yes (Hospitalization, Other)
  Sender: FDA-Public Use
  Company Number: JP-ELI_LILLY_AND_COMPANY-JP201209001442

PATIENT
  Age: 31 Year
  Sex: Female

DRUGS (3)
  1. HUMALOG LISPRO [Suspect]
     Indication: TYPE 1 DIABETES MELLITUS
     Dosage: UNK, tid
     Route: 058
  2. HUMALOG LISPRO [Suspect]
     Dosage: UNK, single
     Route: 058
     Dates: start: 20120906, end: 20120906
  3. LANTUS [Concomitant]
     Indication: TYPE 1 DIABETES MELLITUS
     Dosage: 14 u, UNK

REACTIONS (3)
  - Hypoglycaemia [Recovered/Resolved]
  - Suicide attempt [Unknown]
  - Intentional overdose [Recovered/Resolved]
